FAERS Safety Report 9655576 (Version 2)
Quarter: 2013Q4

REPORT INFORMATION
  Report Type: Spontaneous
  Country: US (occurrence: US)
  Receive Date: 20131029
  Receipt Date: 20131221
  Transmission Date: 20140711
  Serious: No
  Sender: FDA-Public Use
  Company Number: US-B.I. PHARMACEUTICALS,INC./RIDGEFIELD-2013-BI-33543BP

PATIENT
  Age: 68 Year
  Sex: Female
  Weight: 245 kg

DRUGS (3)
  1. SPIRIVA [Suspect]
     Indication: ASTHMA
     Route: 055
     Dates: start: 20130114
  2. SPIRIVA [Suspect]
     Dosage: 18 MCG
     Route: 055
     Dates: start: 201302, end: 201311
  3. ALBUTEROL SULFATE/IPRATROPIUM [Concomitant]
     Indication: ASTHMA
     Route: 055

REACTIONS (3)
  - Anaemia [Recovered/Resolved]
  - Dyspnoea [Recovered/Resolved]
  - Off label use [Not Recovered/Not Resolved]
